FAERS Safety Report 10152408 (Version 1)
Quarter: 2014Q2

REPORT INFORMATION
  Report Type: Spontaneous
  Country: US (occurrence: None)
  Receive Date: 20140502
  Receipt Date: 20140502
  Transmission Date: 20141212
  Serious: No
  Sender: FDA-Public Use
  Company Number: None

PATIENT
  Age: 51 Year
  Sex: Female
  Weight: 57.15 kg

DRUGS (2)
  1. POLYETHYLENE GLYCOL [Suspect]
     Indication: CONSTIPATION
     Route: 048
     Dates: start: 20140428, end: 20140430
  2. POLYETHYLENE GLYCOL [Suspect]
     Indication: HAEMORRHOIDS
     Route: 048
     Dates: start: 20140428, end: 20140430

REACTIONS (9)
  - Insomnia [None]
  - Balance disorder [None]
  - Anger [None]
  - Paraesthesia [None]
  - Dizziness [None]
  - Miliaria [None]
  - Nausea [None]
  - Tremor [None]
  - Feeling abnormal [None]
